FAERS Safety Report 22826543 (Version 2)
Quarter: 2023Q4

REPORT INFORMATION
  Report Type: Spontaneous
  Country: US (occurrence: US)
  Receive Date: 20230816
  Receipt Date: 20231106
  Transmission Date: 20240110
  Serious: Yes (Other)
  Sender: FDA-Public Use
  Company Number: US-BAYER-2023A111963

PATIENT
  Age: 33 Year
  Sex: Female
  Weight: 87.528 kg

DRUGS (1)
  1. MIRENA [Suspect]
     Active Substance: LEVONORGESTREL
     Dosage: 20?G/DAY
     Route: 015
     Dates: start: 20160929, end: 20230718

REACTIONS (5)
  - Pregnancy with contraceptive device [Recovering/Resolving]
  - Abortion spontaneous [None]
  - Haemorrhage in pregnancy [None]
  - Drug ineffective [None]
  - Pelvic pain [None]

NARRATIVE: CASE EVENT DATE: 20230701
